FAERS Safety Report 10969333 (Version 1)
Quarter: 2015Q1

REPORT INFORMATION
  Report Type: Spontaneous
  Country: GB (occurrence: GB)
  Receive Date: 20150331
  Receipt Date: 20150331
  Transmission Date: 20150721
  Serious: Yes (Hospitalization)
  Sender: FDA-Public Use
  Company Number: GB-CIPLA LTD.-2015GB02526

PATIENT

DRUGS (11)
  1. AVASTIN [Suspect]
     Active Substance: BEVACIZUMAB
     Dosage: 650 MG, UNK
     Dates: start: 20130830
  2. XELODA [Suspect]
     Active Substance: CAPECITABINE
     Indication: GASTRIC CANCER
     Dosage: 42000 MG, UNK
     Route: 048
     Dates: start: 20130820
  3. CISPLATIN. [Suspect]
     Active Substance: CISPLATIN
     Dosage: UNK
     Route: 042
     Dates: start: 20130830
  4. SIMVASTATIN. [Concomitant]
     Active Substance: SIMVASTATIN
     Dosage: UNK
     Route: 048
  5. BENDROFLUMETHIAZIDE [Concomitant]
     Active Substance: BENDROFLUMETHIAZIDE
     Route: 048
  6. EPIRUBICIN [Suspect]
     Active Substance: EPIRUBICIN
     Indication: GASTRIC CANCER
     Dosage: UNK
     Route: 042
     Dates: start: 20130830
  7. EPIRUBICIN [Suspect]
     Active Substance: EPIRUBICIN
     Dosage: 80 MG, UNK
     Dates: start: 20130920
  8. CISPLATIN. [Suspect]
     Active Substance: CISPLATIN
     Dosage: 95 MG, UNK
     Dates: start: 20130920
  9. AVASTIN [Suspect]
     Active Substance: BEVACIZUMAB
     Indication: GASTRIC CANCER
     Dosage: UNK
     Route: 042
     Dates: start: 20130920
  10. XELODA [Suspect]
     Active Substance: CAPECITABINE
     Dosage: 42000 MG, UNK
     Route: 048
     Dates: start: 20130930
  11. TIOTROPIUM [Concomitant]
     Active Substance: TIOTROPIUM
     Route: 048

REACTIONS (3)
  - Chest pain [Recovered/Resolved]
  - Arthralgia [Recovered/Resolved]
  - Myalgia [Recovered/Resolved]

NARRATIVE: CASE EVENT DATE: 20130904
